FAERS Safety Report 11337995 (Version 1)
Quarter: 2015Q3

REPORT INFORMATION
  Report Type: Spontaneous
  Country: US (occurrence: US)
  Receive Date: 20150803
  Receipt Date: 20150803
  Transmission Date: 20151125
  Serious: Yes (Hospitalization, Disabling)
  Sender: FDA-Public Use
  Company Number: US-ELI_LILLY_AND_COMPANY-US200911006181

PATIENT
  Sex: Male
  Weight: 112.2 kg

DRUGS (10)
  1. SERTRALINE [Concomitant]
     Active Substance: SERTRALINE HYDROCHLORIDE
     Dosage: 50 MG, EACH MORNING
     Dates: start: 20060615
  2. QUETIAPINE [Concomitant]
     Active Substance: QUETIAPINE
     Dates: start: 1997
  3. MIRTAZAPIN [Concomitant]
     Active Substance: MIRTAZAPINE
     Dates: start: 20071206
  4. ZYPREXA [Suspect]
     Active Substance: OLANZAPINE
     Dosage: 30 MG, DAILY (1/D)
     Dates: start: 2006, end: 2007
  5. CITALOPRAM [Concomitant]
     Active Substance: CITALOPRAM HYDROBROMIDE
     Dates: start: 20080510
  6. TRAZODONE [Concomitant]
     Active Substance: TRAZODONE HYDROCHLORIDE
     Dosage: 150 MG, EACH EVENING
  7. ZYPREXA [Suspect]
     Active Substance: OLANZAPINE
     Dosage: 20 MG, DAILY (1/D)
     Dates: start: 1997
  8. ARIPIPRAZOLE. [Concomitant]
     Active Substance: ARIPIPRAZOLE
     Dosage: 30 MG, DAILY (1/D)
     Dates: start: 20060414
  9. RISPERDAL [Concomitant]
     Active Substance: RISPERIDONE
     Dates: start: 1997
  10. DEPAKENE [Concomitant]
     Active Substance: VALPROIC ACID
     Dosage: 500 MG, 3/D
     Dates: start: 2006

REACTIONS (4)
  - Stress [Not Recovered/Not Resolved]
  - Prescribed overdose [Recovered/Resolved]
  - Weight increased [Unknown]
  - Diabetes mellitus [Not Recovered/Not Resolved]

NARRATIVE: CASE EVENT DATE: 2006
